FAERS Safety Report 9100364 (Version 1)
Quarter: 2013Q1

REPORT INFORMATION
  Report Type: Spontaneous
  Country: BE (occurrence: BE)
  Receive Date: 20130215
  Receipt Date: 20130215
  Transmission Date: 20140127
  Serious: Yes (Other)
  Sender: FDA-Public Use
  Company Number: BE-BAYER-2013-019321

PATIENT
  Age: 79 Year
  Sex: Male

DRUGS (3)
  1. AVELOX [Suspect]
     Indication: RESPIRATORY TRACT INFECTION
     Dosage: 400 MG, QD
     Route: 048
  2. APROVEL [Concomitant]
     Indication: HYPERTENSION
  3. LIPITOR [Concomitant]

REACTIONS (4)
  - Loss of consciousness [None]
  - Dyspepsia [Recovered/Resolved]
  - Malaise [None]
  - Off label use [None]
